FAERS Safety Report 6810980-2 (Version None)
Quarter: 2010Q2

REPORT INFORMATION
  Report Type: 
  Country: None (occurrence: None)
  Receive Date: 20100630
  Receipt Date: 20081229
  Transmission Date: 20101027
  Serious: No
  Sender: FDA-Public Use
  Company Number: US-PFIZER INC-2008095063

PATIENT
  Sex: Female

DRUGS (10)
  1. ESTRING [Suspect]
     Dosage: 2 MG, UNK
     Route: 067
     Dates: start: 20070201
  2. ZOLPIDEM [Concomitant]
  3. LEVOXYL [Concomitant]
  4. ALPRAZOLAM [Concomitant]
  5. IBUPROFEN [Concomitant]
  6. OLOPATADINE HYDROCHLORIDE [Concomitant]
  7. PAROXETINE [Concomitant]
  8. NEXIUM [Concomitant]
  9. ACTONEL [Concomitant]
  10. CALCITRIOL [Concomitant]

REACTIONS (2)
  - DRUG INEFFECTIVE [None]
  - VULVOVAGINAL DRYNESS [None]
